FAERS Safety Report 10395436 (Version 2)
Quarter: 2014Q3

REPORT INFORMATION
  Report Type: Spontaneous
  Country: US (occurrence: US)
  Receive Date: 20140820
  Receipt Date: 20140820
  Transmission Date: 20150326
  Serious: Yes (Other)
  Sender: FDA-Public Use
  Company Number: US-UCBSA-2014006801

PATIENT
  Age: 57 Year
  Sex: Female

DRUGS (2)
  1. CIMZIA [Suspect]
     Active Substance: CERTOLIZUMAB PEGOL
     Indication: CROHN^S DISEASE
     Dosage: 200 MG, 2X/WEEK
     Dates: start: 20091204
  2. CIMZIA [Suspect]
     Active Substance: CERTOLIZUMAB PEGOL
     Indication: OFF LABEL USE

REACTIONS (4)
  - Urinary tract infection [Not Recovered/Not Resolved]
  - Off label use [Unknown]
  - Bladder obstruction [Not Recovered/Not Resolved]
  - Bladder catheterisation [Recovered/Resolved]

NARRATIVE: CASE EVENT DATE: 20140721
